FAERS Safety Report 8173152-8 (Version None)
Quarter: 2012Q1

REPORT INFORMATION
  Report Type: 
  Country: None (occurrence: None)
  Receive Date: 20120229
  Receipt Date: 20110322
  Transmission Date: 20120608
  Serious: No
  Sender: FDA-Public Use
  Company Number: US-GLAXOSMITHKLINE-A0919453A

PATIENT
  Age: 52 Year
  Sex: Female

DRUGS (7)
  1. IMITREX [Suspect]
     Indication: MIGRAINE
     Route: 048
  2. ASPIRIN [Concomitant]
  3. ESTRACE [Concomitant]
  4. VITAMIN D [Concomitant]
  5. VITAMIN B-12 [Concomitant]
  6. SUMATRIPTAN SUCCINATE [Suspect]
     Indication: MIGRAINE
     Dosage: 6MG AS REQUIRED
     Route: 058
     Dates: start: 20010101
  7. B2 [Concomitant]

REACTIONS (6)
  - DRUG INEFFECTIVE [None]
  - MIGRAINE [None]
  - PARAESTHESIA [None]
  - FATIGUE [None]
  - PRODUCT QUALITY ISSUE [None]
  - NAUSEA [None]
